FAERS Safety Report 6577174-X (Version None)
Quarter: 2010Q1

REPORT INFORMATION
  Report Type: 
  Country: None (occurrence: None)
  Receive Date: 20100210
  Receipt Date: 20100129
  Transmission Date: 20100710
  Serious: Yes (Hospitalization)
  Sender: FDA-Public Use
  Company Number: PHHO2010US02089

PATIENT
  Sex: Female
  Weight: 64.8 kg

DRUGS (6)
  1. DICLOFENAC SODIUM [Suspect]
     Indication: RHEUMATOID ARTHRITIS
     Dosage: 50 MG / DAY
     Route: 048
     Dates: start: 20080123
  2. PREDNISONE [Suspect]
     Indication: RHEUMATOID ARTHRITIS
     Dosage: 5 MG / DAY
     Route: 048
     Dates: start: 20071010
  3. METHOTREXATE SODIUM [Suspect]
     Indication: RHEUMATOID ARTHRITIS
     Dosage: 20 MG WEEKLY
     Route: 048
     Dates: start: 20060901, end: 20090427
  4. OMEPRAZOLE [Concomitant]
     Indication: GASTRITIS PROPHYLAXIS
  5. HYDROCHLOROTHIAZIDE [Concomitant]
     Indication: HYPERTENSION
  6. PROPRANOLOL [Concomitant]
     Indication: HYPERTENSION

REACTIONS (1)
  - HEPATIC STEATOSIS [None]
